FAERS Safety Report 6823721-X (Version None)
Quarter: 2010Q3

REPORT INFORMATION
  Report Type: 
  Country: None (occurrence: None)
  Receive Date: 20100708
  Receipt Date: 20060818
  Transmission Date: 20110219
  Serious: No
  Sender: FDA-Public Use
  Company Number: US-PFIZER INC-2006102782

PATIENT
  Sex: Female

DRUGS (8)
  1. CHANTIX [Suspect]
     Indication: EX-TOBACCO USER
     Route: 048
     Dates: start: 20060801
  2. HERBAL PREPARATION INGREDIENTS UNKNOWN [Concomitant]
  3. LEVOXYL [Concomitant]
  4. GARLIC [Concomitant]
  5. VITAMIN C [Concomitant]
  6. CALCIUM CARBONATE [Concomitant]
  7. TPN [Concomitant]
  8. HERBAL PREPARATION [Concomitant]

REACTIONS (2)
  - GASTROENTERITIS VIRAL [None]
  - VOMITING [None]
